FAERS Safety Report 13108207 (Version 3)
Quarter: 2017Q1

REPORT INFORMATION
  Report Type: Spontaneous
  Country: JP (occurrence: JP)
  Receive Date: 20170112
  Receipt Date: 20170323
  Transmission Date: 20170428
  Serious: Yes (Other)
  Sender: FDA-Public Use
  Company Number: JP-ASTRAZENECA-2017SE02796

PATIENT
  Age: 73 Year
  Sex: Male
  Weight: 47 kg

DRUGS (12)
  1. DOBUTAMINE [Suspect]
     Active Substance: DOBUTAMINE\DOBUTAMINE HYDROCHLORIDE
     Indication: CARDIAC FAILURE
     Route: 041
     Dates: start: 2016, end: 2016
  2. HANP [Suspect]
     Active Substance: CARPERITIDE
     Indication: CARDIAC FAILURE
     Route: 041
     Dates: start: 20160820, end: 20160917
  3. LASIX [Suspect]
     Active Substance: FUROSEMIDE
     Indication: CARDIAC FAILURE
     Route: 042
     Dates: start: 20160724, end: 20160826
  4. HANP [Suspect]
     Active Substance: CARPERITIDE
     Indication: CARDIAC FAILURE
     Route: 041
     Dates: start: 2016, end: 2016
  5. SEROQUEL [Suspect]
     Active Substance: QUETIAPINE FUMARATE
     Indication: PRODUCT USED FOR UNKNOWN INDICATION
     Route: 048
     Dates: start: 20160815, end: 20160827
  6. DOBUTAMINE [Suspect]
     Active Substance: DOBUTAMINE\DOBUTAMINE HYDROCHLORIDE
     Indication: CARDIAC FAILURE
     Route: 041
     Dates: start: 20160708, end: 20160721
  7. LASIX [Suspect]
     Active Substance: FUROSEMIDE
     Indication: CARDIAC FAILURE
     Route: 042
     Dates: start: 2016, end: 2016
  8. MEROPEN [Suspect]
     Active Substance: MEROPENEM
     Indication: PNEUMONIA
     Route: 041
     Dates: start: 201607, end: 2016
  9. MINOMYCIN [Suspect]
     Active Substance: MINOCYCLINE HYDROCHLORIDE
     Indication: PRODUCT USED FOR UNKNOWN INDICATION
     Route: 041
     Dates: start: 20160818, end: 20160902
  10. MEROPEN [Suspect]
     Active Substance: MEROPENEM
     Indication: PNEUMONIA
     Route: 041
     Dates: start: 20160830, end: 20160904
  11. CEFEPIME HYDROCHLORIDE. [Suspect]
     Active Substance: CEFEPIME HYDROCHLORIDE
     Indication: INFECTIOUS PLEURAL EFFUSION
     Route: 041
     Dates: start: 20160729, end: 20160817
  12. SEROQUEL [Suspect]
     Active Substance: QUETIAPINE FUMARATE
     Indication: PRODUCT USED FOR UNKNOWN INDICATION
     Route: 048
     Dates: start: 20160810, end: 20160814

REACTIONS (8)
  - Acute kidney injury [Recovered/Resolved]
  - Pneumonia aspiration [Unknown]
  - Off label use [Recovered/Resolved]
  - Anuria [Recovering/Resolving]
  - Renal tubular necrosis [Recovering/Resolving]
  - Infectious pleural effusion [Unknown]
  - Product use issue [Recovered/Resolved]
  - Delirium [Recovering/Resolving]

NARRATIVE: CASE EVENT DATE: 2016
